FAERS Safety Report 5236269-3 (Version None)
Quarter: 2007Q1

REPORT INFORMATION
  Report Type: 
  Country: None (occurrence: None)
  Receive Date: 20070212
  Receipt Date: 20070131
  Transmission Date: 20070707
  Serious: Yes (Other)
  Sender: FDA-Public Use
  Company Number: DE-PFIZER INC-2007006781

PATIENT
  Sex: Male

DRUGS (8)
  1. INSPRA [Suspect]
     Indication: CARDIAC FAILURE
     Route: 048
  2. INSPRA [Suspect]
     Indication: CORONARY ARTERY DISEASE
  3. ACE INHIBITOR NOS [Concomitant]
  4. FOSINORM [Concomitant]
  5. CORANGIN [Concomitant]
  6. ALLOPURINOL SODIUM [Concomitant]
  7. PLAVIX [Concomitant]
  8. SPIROLACTONE [Concomitant]

REACTIONS (2)
  - HAEMOPTYSIS [None]
  - PRURITUS [None]
